FAERS Safety Report 12484128 (Version 1)
Quarter: 2016Q2

REPORT INFORMATION
  Report Type: Spontaneous
  Country: PT (occurrence: PT)
  Receive Date: 20160621
  Receipt Date: 20160621
  Transmission Date: 20160815
  Serious: Yes (Hospitalization)
  Sender: FDA-Public Use
  Company Number: PT-AUROBINDO-AUR-APL-2016-08119

PATIENT
  Age: 14 Year
  Sex: Female

DRUGS (3)
  1. PREGABALINE [Suspect]
     Active Substance: PREGABALIN
     Indication: EPILEPSY
     Dosage: 8 MG/KG, UNK
     Route: 065
  2. LAMOTRIGINE. [Suspect]
     Active Substance: LAMOTRIGINE
     Indication: EPILEPSY
     Dosage: 8 MG/KG, UNK
     Route: 065
  3. CARBAMAZEPINE. [Suspect]
     Active Substance: CARBAMAZEPINE
     Indication: EPILEPSY
     Dosage: 45 MG/KG, UNK
     Route: 065

REACTIONS (1)
  - Abnormal behaviour [Unknown]
